FAERS Safety Report 4451932-X (Version None)
Quarter: 2004Q3

REPORT INFORMATION
  Report Type: 
  Country: None (occurrence: None)
  Receive Date: 20040917
  Receipt Date: 20040909
  Transmission Date: 20050211
  Serious: Yes (Other)
  Sender: FDA-Public Use
  Company Number: 200413376FR

PATIENT
  Age: 20 Year
  Sex: Female

DRUGS (3)
  1. KETEK [Suspect]
     Indication: ACUTE SINUSITIS
     Route: 048
     Dates: start: 20040826
  2. DERINOX [Concomitant]
     Dates: start: 20040826
  3. EXOMUC [Concomitant]
     Dates: start: 20040826

REACTIONS (7)
  - ALANINE AMINOTRANSFERASE INCREASED [None]
  - ASPARTATE AMINOTRANSFERASE INCREASED [None]
  - CHOLELITHIASIS [None]
  - GAMMA-GLUTAMYLTRANSFERASE INCREASED [None]
  - HEPATOCELLULAR DAMAGE [None]
  - MALAISE [None]
  - PROTHROMBIN TIME PROLONGED [None]
